FAERS Safety Report 5335072-3 (Version None)
Quarter: 2007Q2

REPORT INFORMATION
  Report Type: 
  Country: None (occurrence: None)
  Receive Date: 20070525
  Receipt Date: 20070516
  Transmission Date: 20071010
  Serious: Yes (Hospitalization)
  Sender: FDA-Public Use
  Company Number: GB-AMGEN-US226143

PATIENT
  Sex: Male

DRUGS (4)
  1. ENBREL [Suspect]
     Indication: DRUG USE FOR UNKNOWN INDICATION
  2. DOMPERIDONE [Concomitant]
     Dosage: UNKNOWN
  3. PARACETAMOL [Concomitant]
     Dosage: UNKNOWN
  4. PREDNISOLONE [Concomitant]
     Dosage: UNKNOWN

REACTIONS (2)
  - HEPATIC ENZYME INCREASED [None]
  - PLATELET COUNT DECREASED [None]
